FAERS Safety Report 21212851 (Version 1)
Quarter: 2022Q3

REPORT INFORMATION
  Report Type: Spontaneous
  Country: CN (occurrence: CN)
  Receive Date: 20220815
  Receipt Date: 20220815
  Transmission Date: 20221027
  Serious: Yes (Other)
  Sender: FDA-Public Use
  Company Number: CN-ABBVIE-22K-035-4482432-00

PATIENT

DRUGS (1)
  1. HUMIRA [Suspect]
     Active Substance: ADALIMUMAB
     Indication: Crohn^s disease
     Route: 058

REACTIONS (11)
  - Drug-induced liver injury [Unknown]
  - Pulmonary tuberculosis [Unknown]
  - Optic neuritis [Recovering/Resolving]
  - Hypersensitivity [Recovering/Resolving]
  - Injection site hypersensitivity [Unknown]
  - Infection [Unknown]
  - White blood cell count decreased [Unknown]
  - Headache [Unknown]
  - Arthralgia [Unknown]
  - Psoriasis [Unknown]
  - Upper respiratory tract infection [Unknown]
